FAERS Safety Report 9828377 (Version 2)
Quarter: 2014Q1

REPORT INFORMATION
  Report Type: Spontaneous
  Country: CN (occurrence: CN)
  Receive Date: 20140117
  Receipt Date: 20140124
  Transmission Date: 20141002
  Serious: Yes (Other)
  Sender: FDA-Public Use
  Company Number: CN-GLAXOSMITHKLINE-B0961069A

PATIENT
  Age: 38 Year
  Sex: Male

DRUGS (1)
  1. CEFUROXIME [Suspect]
     Indication: PNEUMONIA ASPIRATION
     Dosage: 3G TWICE PER DAY
     Route: 065

REACTIONS (10)
  - Dermatitis exfoliative [Unknown]
  - Agranulocytosis [Unknown]
  - Skin infection [Unknown]
  - Type IV hypersensitivity reaction [Unknown]
  - Pruritus generalised [Unknown]
  - Flushing [Unknown]
  - Papule [Unknown]
  - Skin lesion [Unknown]
  - Pyrexia [Unknown]
  - Hypersensitivity [Unknown]
